FAERS Safety Report 17680669 (Version 2)
Quarter: 2020Q2

REPORT INFORMATION
  Report Type: Spontaneous
  Country: US (occurrence: US)
  Receive Date: 20200417
  Receipt Date: 20200506
  Transmission Date: 20200714
  Serious: No
  Sender: FDA-Public Use
  Company Number: US-AMGEN-USASP2020061520

PATIENT
  Age: 44 Year
  Sex: Female
  Weight: 73.47 kg

DRUGS (3)
  1. REPATHA [Suspect]
     Active Substance: EVOLOCUMAB
     Indication: BLOOD CHOLESTEROL INCREASED
     Dosage: UNK, QMO
     Route: 065
     Dates: start: 20200303
  2. REPATHA [Suspect]
     Active Substance: EVOLOCUMAB
     Indication: LIPOPROTEIN (A) INCREASED
  3. REPATHA [Suspect]
     Active Substance: EVOLOCUMAB
     Indication: DYSLIPIDAEMIA

REACTIONS (2)
  - Accidental exposure to product [Unknown]
  - Wrong technique in device usage process [Unknown]

NARRATIVE: CASE EVENT DATE: 20200404
